FAERS Safety Report 15155134 (Version 1)
Quarter: 2018Q3

REPORT INFORMATION
  Report Type: Report from Study
  Country: US (occurrence: US)
  Receive Date: 20180717
  Receipt Date: 20180717
  Transmission Date: 20181010
  Serious: Yes (Hospitalization, Other)
  Sender: FDA-Public Use
  Company Number: US-ASTRAZENECA-2018SE88938

PATIENT
  Age: 59 Year
  Sex: Male
  Weight: 92.5 kg

DRUGS (13)
  1. DILTIAZEM. [Concomitant]
     Active Substance: DILTIAZEM
     Route: 048
     Dates: start: 1998
  2. ASPIRIN. [Concomitant]
     Active Substance: ASPIRIN
     Indication: COLON CANCER
     Route: 048
     Dates: start: 1990
  3. METFORMIN [Concomitant]
     Active Substance: METFORMIN HYDROCHLORIDE
     Indication: DIABETES MELLITUS
     Route: 048
     Dates: start: 2003
  4. DIPHENHYDRAMINE. [Concomitant]
     Active Substance: DIPHENHYDRAMINE
     Indication: MULTIPLE ALLERGIES
     Route: 048
     Dates: start: 2018
  5. ATENOLOL. [Suspect]
     Active Substance: ATENOLOL
     Indication: BLOOD PRESSURE ABNORMAL
     Route: 048
     Dates: start: 1998
  6. DULOXETINE. [Concomitant]
     Active Substance: DULOXETINE
     Indication: DEPRESSION
     Route: 048
     Dates: start: 1998
  7. SYMBICORT [Suspect]
     Active Substance: BUDESONIDE\FORMOTEROL FUMARATE DIHYDRATE
     Indication: ASTHMA
     Dosage: 3 PUFFS OF SYMBICORT AND WITHIN IN A FEW MINUTES
     Route: 055
  8. ATORVASTATIN [Concomitant]
     Active Substance: ATORVASTATIN
     Indication: HYPERTENSION
     Route: 048
  9. SYMBICORT [Suspect]
     Active Substance: BUDESONIDE\FORMOTEROL FUMARATE DIHYDRATE
     Indication: ASTHMA
     Dosage: 16/4.5 MCG 2 PUFFS TWICE PER DAY
     Route: 055
     Dates: start: 2008
  10. SYMBICORT [Suspect]
     Active Substance: BUDESONIDE\FORMOTEROL FUMARATE DIHYDRATE
     Indication: ASTHMA
     Dosage: 2 PUFFS IN MORNING AND ONE AT NIGHT
     Route: 055
  11. LISINOPRIL. [Suspect]
     Active Substance: LISINOPRIL
     Indication: BLOOD PRESSURE ABNORMAL
     Route: 048
     Dates: start: 1993
  12. OMEPRAZOLE. [Suspect]
     Active Substance: OMEPRAZOLE
     Indication: GASTROOESOPHAGEAL REFLUX DISEASE
     Dosage: 20.0MG UNKNOWN
     Route: 048
     Dates: start: 1998
  13. PREDNISONE. [Concomitant]
     Active Substance: PREDNISONE
     Indication: ASTHMA
     Route: 048
     Dates: start: 20180614

REACTIONS (23)
  - Anxiety [Unknown]
  - Euphoric mood [Unknown]
  - Amnesia [Not Recovered/Not Resolved]
  - Clostridium difficile infection [Unknown]
  - Panic attack [Unknown]
  - Asthma [Unknown]
  - Drug dependence [Unknown]
  - Pneumonia [Unknown]
  - Open fracture [Recovering/Resolving]
  - Upper limb fracture [Recovering/Resolving]
  - Malignant melanoma [Unknown]
  - Macular degeneration [Unknown]
  - Weight decreased [Unknown]
  - Osteoarthritis [Unknown]
  - Drug withdrawal syndrome [Unknown]
  - Disorientation [Unknown]
  - Prostate cancer [Unknown]
  - Cataract [Unknown]
  - Swelling face [Unknown]
  - Diabetes mellitus [Not Recovered/Not Resolved]
  - Intentional product misuse [Unknown]
  - Fall [Unknown]
  - Seasonal allergy [Unknown]

NARRATIVE: CASE EVENT DATE: 2003
